FAERS Safety Report 18341283 (Version 1)
Quarter: 2020Q4

REPORT INFORMATION
  Report Type: Spontaneous
  Country: DE (occurrence: DE)
  Receive Date: 20201003
  Receipt Date: 20201003
  Transmission Date: 20210113
  Serious: Yes (Hospitalization)
  Sender: FDA-Public Use
  Company Number: DE-TEVA-2020-DE-1834301

PATIENT
  Age: 27 Year
  Sex: Male
  Weight: 86 kg

DRUGS (4)
  1. PARACETAMOL [Concomitant]
     Active Substance: ACETAMINOPHEN
     Dosage: 2000 MILLIGRAM DAILY; 1-1-1-1
     Route: 048
  2. CITALOPRAM [Suspect]
     Active Substance: CITALOPRAM HYDROBROMIDE
     Dosage: 10 MILLIGRAM DAILY;  0-0-1-0
     Route: 048
  3. SOTALOL. [Suspect]
     Active Substance: SOTALOL
     Dosage: 320 MILLIGRAM DAILY; 1-0-1-0
     Route: 048
  4. KALINOR - RETARD P 600MG [Concomitant]
     Dosage: 600 MG, TUESDAY FRIDAY
     Route: 048

REACTIONS (3)
  - General physical health deterioration [Unknown]
  - Dyspnoea [Unknown]
  - Angina pectoris [Unknown]
